FAERS Safety Report 5939202-1 (Version None)
Quarter: 2008Q4

REPORT INFORMATION
  Report Type: 
  Country: None (occurrence: None)
  Receive Date: 20081103
  Receipt Date: 20081022
  Transmission Date: 20090506
  Serious: Yes (Disabling, Other)
  Sender: FDA-Public Use
  Company Number: FR-PFIZER INC-2007103470

PATIENT
  Sex: Male

DRUGS (6)
  1. VFEND [Suspect]
     Indication: ASPERGILLOSIS
     Route: 048
     Dates: start: 20061110, end: 20071120
  2. FONZYLANE [Concomitant]
  3. PLAVIX [Concomitant]
  4. ZOCOR [Concomitant]
  5. MONO-TILDIEM [Concomitant]
  6. CORTANCYL [Concomitant]

REACTIONS (2)
  - NEUROPATHY PERIPHERAL [None]
  - PARAESTHESIA [None]
